FAERS Safety Report 8776376 (Version 1)
Quarter: 2012Q4

REPORT INFORMATION
  Report Type: 
  Country: GB (occurrence: GB)
  Receive Date: 20120910
  Receipt Date: 20120910
  Transmission Date: 20130627
  Serious: Yes (Other)
  Sender: FDA-Public Use
  Company Number: GB-GILEAD-2012-0060789

PATIENT
  Sex: Female

DRUGS (3)
  1. TRUVADA [Suspect]
     Route: 048
  2. ATAZANAVIR [Suspect]
  3. RITONAVIR [Suspect]

REACTIONS (1)
  - Systemic sclerosis [Unknown]
